FAERS Safety Report 8621527 (Version 5)
Quarter: 2016Q4

REPORT INFORMATION
  Report Type: Report from Study
  Country: CA (occurrence: CA)
  Receive Date: 20120619
  Receipt Date: 20161220
  Transmission Date: 20170207
  Serious: Yes (Other)
  Sender: FDA-Public Use
  Company Number: CA-UCBSA-059498

PATIENT
  Age: 55 Year
  Sex: Female
  Weight: 78 kg

DRUGS (12)
  1. FOLIC ACID. [Concomitant]
     Active Substance: FOLIC ACID
     Indication: PROPHYLAXIS
     Dosage: DOSE: 5 MG QS
     Route: 048
     Dates: start: 20101217, end: 20120630
  2. VOLTAREN [Concomitant]
     Active Substance: DICLOFENAC SODIUM
     Indication: MUSCULOSKELETAL PAIN
     Dosage: 1 APP. PRN
     Dates: start: 20120104
  3. NORVASC [Concomitant]
     Active Substance: AMLODIPINE BESYLATE
     Indication: HYPERTENSION
     Dosage: 5 MG, ONCE DAILY (QD)
     Route: 048
     Dates: start: 2004
  4. CERTOLIZUMAB PEGOL RA [Suspect]
     Active Substance: CERTOLIZUMAB PEGOL
     Dosage: DOSE: 200 MG; NO OF DOSES RECEIVED: 15
     Route: 058
     Dates: start: 20111107, end: 20120529
  5. NOVOLISINOPRIL [Concomitant]
     Indication: HYPERTENSION
     Dosage: 1 TAB ONCE DAILY
     Route: 048
     Dates: start: 2004
  6. METHOTREXATE. [Concomitant]
     Active Substance: METHOTREXATE
     Dosage: DOSE: 20 MG, QS
     Dates: start: 20120716, end: 20120829
  7. CALTRATE - D [Concomitant]
     Indication: OSTEOPOROSIS PROPHYLAXIS
     Dosage: 1 TAB TWICE DAILY
     Route: 048
     Dates: start: 20110517
  8. MAALOX EXTRA-STRENGTH [Concomitant]
     Indication: DYSPEPSIA
     Dosage: 30 ML, AS NEEDED (PRN)
     Dates: start: 20111019
  9. CERTOLIZUMAB PEGOL RA [Suspect]
     Active Substance: CERTOLIZUMAB PEGOL
     Indication: RHEUMATOID ARTHRITIS
     Dosage: NO OF DOSES RECEIVED: 3; DOSE: 400MG
     Route: 058
     Dates: start: 20110926, end: 20111025
  10. PANTOLOC [Concomitant]
     Active Substance: PANTOPRAZOLE SODIUM
     Indication: DYSPEPSIA
     Dosage: 40 MG, ONCE DAILY (QD)
     Route: 048
     Dates: start: 20110517
  11. METHOTREXATE. [Concomitant]
     Active Substance: METHOTREXATE
     Indication: RHEUMATOID ARTHRITIS
     Dosage: DOSE: 20 MG QS
     Route: 048
     Dates: start: 20101216, end: 20120629
  12. FOLIC ACID. [Concomitant]
     Active Substance: FOLIC ACID
     Dosage: DOSE: 5 MG QS
     Dates: start: 20120717, end: 20120830

REACTIONS (2)
  - Invasive ductal breast carcinoma [Not Recovered/Not Resolved]
  - Rheumatoid arthritis [Unknown]

NARRATIVE: CASE EVENT DATE: 2012
